FAERS Safety Report 12231377 (Version 1)
Quarter: 2016Q2

REPORT INFORMATION
  Report Type: Spontaneous
  Country: US (occurrence: US)
  Receive Date: 20160401
  Receipt Date: 20160401
  Transmission Date: 20160815
  Serious: Yes (Other)
  Sender: FDA-Public Use
  Company Number: US-MDT-ADR-2016-00607

PATIENT
  Age: 53 Year
  Sex: Female

DRUGS (2)
  1. COMPOUNDED BACLOFEN [Suspect]
     Active Substance: BACLOFEN
     Dosage: 12.5MCG/DAY
     Route: 037
  2. COMPOUNDED BACLOFEN [Suspect]
     Active Substance: BACLOFEN
     Dosage: 144MCG/DAY
     Route: 037

REACTIONS (3)
  - Lethargy [Unknown]
  - Implant site infection [Unknown]
  - Fatigue [Unknown]
